FAERS Safety Report 4595851-7 (Version None)
Quarter: 2005Q1

REPORT INFORMATION
  Report Type: 
  Country: None (occurrence: None)
  Receive Date: 20050224
  Receipt Date: 20050203
  Transmission Date: 20050727
  Serious: Yes (Death, Other)
  Sender: FDA-Public Use
  Company Number: GBS040815373

PATIENT
  Age: 54 Year
  Sex: Female

DRUGS (6)
  1. GEMCITABINE HYDROCHLORIDE              (GEMCITABINE) [Suspect]
     Indication: PANCREATIC CARCINOMA
     Route: 042
     Dates: start: 20030501, end: 20040801
  2. MORPHINE SULFATE [Concomitant]
  3. DOTHIEPIN HYDROCHLORIDE [Concomitant]
  4. LANSOPRAZOLE [Concomitant]
  5. CYCLIZINE [Concomitant]
  6. CO-DANTHRUSATE [Concomitant]

REACTIONS (12)
  - COMPUTERISED TOMOGRAM ABNORMAL [None]
  - CONFUSIONAL STATE [None]
  - DYSCALCULIA [None]
  - DYSLEXIA [None]
  - DYSPHAGIA [None]
  - FALL [None]
  - GENERAL PHYSICAL HEALTH DETERIORATION [None]
  - HEADACHE [None]
  - MONOPARESIS [None]
  - NEUROLOGICAL EXAMINATION ABNORMAL [None]
  - NUCLEAR MAGNETIC RESONANCE IMAGING BRAIN ABNORMAL [None]
  - VERBIGERATION [None]
